FAERS Safety Report 6428851-2 (Version None)
Quarter: 2009Q4

REPORT INFORMATION
  Report Type: 
  Country: None (occurrence: None)
  Receive Date: 20091104
  Receipt Date: 20091104
  Transmission Date: 20100525
  Serious: Yes (Death)
  Sender: FDA-Public Use
  Company Number: None

PATIENT

DRUGS (2)
  1. HYDROMORPHONE HCL [Suspect]
     Indication: PAIN
     Dosage: 4 MG OTHER IV
     Route: 042
     Dates: start: 20090802, end: 20090803
  2. LORAZEPAM [Suspect]
     Indication: PAIN
     Dosage: 2 MG ONCE IV
     Route: 042
     Dates: start: 20090803, end: 20090803

REACTIONS (1)
  - AGITATION [None]
